FAERS Safety Report 24969735 (Version 1)
Quarter: 2025Q1

REPORT INFORMATION
  Report Type: Spontaneous
  Country: CH (occurrence: CH)
  Receive Date: 20250214
  Receipt Date: 20250214
  Transmission Date: 20250408
  Serious: No
  Sender: TRAVERE THERAPEUTICS
  Company Number: CH-BEH-2025195771

PATIENT

DRUGS (2)
  1. FILSPARI [Suspect]
     Active Substance: SPARSENTAN
     Indication: Henoch-Schonlein purpura
     Route: 065
  2. FILSPARI [Suspect]
     Active Substance: SPARSENTAN
     Indication: Off label use

REACTIONS (1)
  - Off label use [Unknown]
